FAERS Safety Report 9349573 (Version 1)
Quarter: 2013Q2

REPORT INFORMATION
  Report Type: Spontaneous
  Country: BR (occurrence: BR)
  Receive Date: 20130614
  Receipt Date: 20130614
  Transmission Date: 20140414
  Serious: Yes (Other)
  Sender: FDA-Public Use
  Company Number: BR-GLAXOSMITHKLINE-B0899535A

PATIENT
  Age: 56 Year
  Sex: Male
  Weight: 85 kg

DRUGS (3)
  1. AVODART [Suspect]
     Indication: PROSTATOMEGALY
     Dosage: .5MG PER DAY
     Route: 048
     Dates: start: 20130204, end: 20130510
  2. ALPRAZOLAM [Concomitant]
     Dosage: 5MG PER DAY
     Route: 048
     Dates: start: 2003
  3. ANGIPRESS [Concomitant]
     Route: 048
     Dates: start: 2003

REACTIONS (4)
  - Drug-induced liver injury [Not Recovered/Not Resolved]
  - Malaise [Recovered/Resolved]
  - Somnolence [Not Recovered/Not Resolved]
  - Liver disorder [Unknown]
